FAERS Safety Report 5226205-8 (Version None)
Quarter: 2007Q1

REPORT INFORMATION
  Report Type: 
  Country: None (occurrence: None)
  Receive Date: 20070201
  Receipt Date: 20070125
  Transmission Date: 20070707
  Serious: Yes (Disabling)
  Sender: FDA-Public Use
  Company Number: ZA-ROCHE-480075

PATIENT
  Age: 22 Year
  Sex: Female
  Weight: 58 kg

DRUGS (2)
  1. ROACCUTANE [Suspect]
     Indication: ACNE
     Dosage: STRENGTH: 10 MG AND 20 MG.
     Route: 048
     Dates: start: 20010515, end: 20011215
  2. ROACCUTANE [Suspect]
     Dosage: STRENGTH: 10 MG AND 20 MG.
     Route: 048
     Dates: start: 20030515, end: 20030915

REACTIONS (3)
  - ALOPECIA [None]
  - DEPRESSED MOOD [None]
  - ROSACEA [None]
